FAERS Safety Report 9225883 (Version 2)
Quarter: 2014Q2

REPORT INFORMATION
  Report Type: Spontaneous
  Country: US (occurrence: US)
  Receive Date: 20130411
  Receipt Date: 20140409
  Transmission Date: 20141212
  Serious: Yes (Hospitalization)
  Sender: FDA-Public Use
  Company Number: US-ASTELLAS-2013US002764

PATIENT
  Age: 9 Month
  Sex: Male

DRUGS (1)
  1. PROTOPIC [Suspect]
     Indication: DERMATITIS ATOPIC
     Dosage: 0.03 %, UID/QD
     Route: 061
     Dates: start: 20091112

REACTIONS (7)
  - Off label use [Unknown]
  - Dehydration [Unknown]
  - Pneumonia [Unknown]
  - Sinusitis [Unknown]
  - Pyrexia [Unknown]
  - Abscess [Unknown]
  - Cellulitis [Recovered/Resolved]
